FAERS Safety Report 10222184 (Version 1)
Quarter: 2014Q2

REPORT INFORMATION
  Report Type: Spontaneous
  Country: JP (occurrence: JP)
  Receive Date: 20140606
  Receipt Date: 20140606
  Transmission Date: 20141212
  Serious: Yes (Other)
  Sender: FDA-Public Use
  Company Number: JP-B.I. PHARMACEUTICALS,INC./RIDGEFIELD-2014-BI-24117NB

PATIENT
  Age: 77 Year
  Sex: Female

DRUGS (2)
  1. GIOTRIF [Suspect]
     Indication: LUNG NEOPLASM MALIGNANT
     Dosage: 20 MG
     Route: 048
     Dates: start: 20140512
  2. GIOTRIF [Suspect]
     Dosage: 30 MG
     Route: 048
     Dates: start: 20140528

REACTIONS (1)
  - Ileus [Recovered/Resolved]
